FAERS Safety Report 13820396 (Version 1)
Quarter: 2017Q3

REPORT INFORMATION
  Report Type: Spontaneous
  Country: US (occurrence: US)
  Receive Date: 20170801
  Receipt Date: 20170801
  Transmission Date: 20171127
  Serious: Yes (Hospitalization)
  Sender: FDA-Public Use
  Company Number: None

PATIENT
  Sex: Female
  Weight: 138.2 kg

DRUGS (2)
  1. ETOPOSIDE (VP-16) [Suspect]
     Active Substance: ETOPOSIDE
     Dates: end: 20170707
  2. CARBOPLATIN. [Suspect]
     Active Substance: CARBOPLATIN
     Dates: end: 20170705

REACTIONS (7)
  - Asthenia [None]
  - Dyspnoea [None]
  - Blood pressure decreased [None]
  - Tachycardia [None]
  - Pyrexia [None]
  - Fatigue [None]
  - Neutrophil count decreased [None]

NARRATIVE: CASE EVENT DATE: 20170720
